FAERS Safety Report 19070526 (Version 1)
Quarter: 2021Q1

REPORT INFORMATION
  Report Type: Report from Study
  Country: US (occurrence: US)
  Receive Date: 20210330
  Receipt Date: 20210330
  Transmission Date: 20210420
  Serious: Yes (Hospitalization)
  Sender: FDA-Public Use
  Company Number: US-TEVA-2021-US-1893991

PATIENT
  Age: 29 Year
  Sex: Female
  Weight: 52.5 kg

DRUGS (6)
  1. DEXAMETHASONE. [Suspect]
     Active Substance: DEXAMETHASONE
     Dosage: TOTAL DOSE ADMINISTERED:224 MILLIGRAM
     Dates: start: 20210108, end: 20210128
  2. METHOTREXATE. [Suspect]
     Active Substance: METHOTREXATE
     Indication: PRECURSOR B-LYMPHOBLASTIC LYMPHOMA
     Dosage: TOTAL DOSE ADMINISTERED: 30 MILLIGRAM
     Route: 065
     Dates: start: 20210122, end: 20210205
  3. VINCRISTINE SULFATE. [Suspect]
     Active Substance: VINCRISTINE SULFATE
     Dosage: TOTAL DOSE ADMINISTERED: 8 MILLIGRAM
     Dates: start: 20210108, end: 20210129
  4. DAUNORUBICIN [Suspect]
     Active Substance: DAUNORUBICIN
     Dosage: TOTAL DOSE ADMINISTERED:160 MILLIGRAM
     Route: 065
     Dates: start: 20210108, end: 20210129
  5. ONCASPAR [Suspect]
     Active Substance: PEGASPARGASE
     Dosage: TOTAL DOSE ADMINISTERED: 3375 IU
     Dates: start: 20210111, end: 20210111
  6. CYTARABINE. [Suspect]
     Active Substance: CYTARABINE
     Dosage: TOTAL DOSE ADMINISTERED:70 MILLIGRAM
     Dates: start: 20210109, end: 20210109

REACTIONS (1)
  - Device related infection [Recovered/Resolved]

NARRATIVE: CASE EVENT DATE: 20210206
